FAERS Safety Report 5334677-3 (Version None)
Quarter: 2007Q2

REPORT INFORMATION
  Report Type: 
  Country: None (occurrence: None)
  Receive Date: 20070525
  Receipt Date: 20070525
  Transmission Date: 20071010
  Serious: Yes (Hospitalization)
  Sender: FDA-Public Use
  Company Number: US-PURDUE-USA_2007_0027433

PATIENT
  Sex: Female

DRUGS (1)
  1. OXYCODONE HCL CR TABLETS (SIMILAR TO NDA 20-553) [Suspect]
     Indication: DRUG USE FOR UNKNOWN INDICATION
     Dosage: UNK MG, UNK

REACTIONS (1)
  - DRUG LEVEL INCREASED [None]
